FAERS Safety Report 7397733-4 (Version None)
Quarter: 2011Q2

REPORT INFORMATION
  Report Type: 
  Country: None (occurrence: None)
  Receive Date: 20110406
  Receipt Date: 20110311
  Transmission Date: 20111010
  Serious: No
  Sender: FDA-Public Use
  Company Number: US-B.I. PHARMACEUTICALS,INC./RIDGEFIELD-2011-BP-07668BP

PATIENT
  Age: 67 Year
  Sex: Female

DRUGS (3)
  1. MULTI-VITAMINS [Concomitant]
     Indication: SUPPLEMENTATION THERAPY
  2. PRADAXA [Suspect]
     Indication: ATRIAL FIBRILLATION
     Dosage: 300 MG
     Route: 048
     Dates: start: 20110302
  3. MULTAQ [Concomitant]
     Indication: ATRIAL FIBRILLATION

REACTIONS (1)
  - ANORECTAL DISCOMFORT [None]
